FAERS Safety Report 8335014-2 (Version None)
Quarter: 2012Q2

REPORT INFORMATION
  Report Type: 
  Country: None (occurrence: None)
  Receive Date: 20120503
  Receipt Date: 20120430
  Transmission Date: 20120825
  Serious: Yes (Death, Hospitalization)
  Sender: FDA-Public Use
  Company Number: US-B.I. PHARMACEUTICALS,INC./RIDGEFIELD-2012-BP-09493BP

PATIENT
  Age: 8 Decade
  Sex: Female

DRUGS (4)
  1. CYMBALTA [Suspect]
  2. PLAVIX [Concomitant]
  3. MEDICATIONS NOT FURTHER SPECIFIED [Concomitant]
  4. PRADAXA [Suspect]
     Indication: ATRIAL FIBRILLATION
     Dosage: 300 MG

REACTIONS (5)
  - HYPOTENSION [None]
  - SEPSIS [None]
  - VASCULITIS [None]
  - PNEUMONIA ASPIRATION [None]
  - MULTI-ORGAN FAILURE [None]
